FAERS Safety Report 7811604-8 (Version None)
Quarter: 2011Q4

REPORT INFORMATION
  Report Type: 
  Country: None (occurrence: None)
  Receive Date: 20111013
  Receipt Date: 20111006
  Transmission Date: 20120403
  Serious: Yes (Hospitalization)
  Sender: FDA-Public Use
  Company Number: US-B.I. PHARMACEUTICALS,INC./RIDGEFIELD-2011-BP-23671BP

PATIENT
  Sex: Female

DRUGS (13)
  1. SYNTHROID [Concomitant]
     Indication: THYROID DISORDER
     Dosage: 125 MCG
     Route: 048
     Dates: start: 20110527
  2. METFORMIN HYDROCHLORIDE [Concomitant]
     Indication: DIABETES MELLITUS
     Dosage: 2000 MG
     Route: 048
     Dates: start: 20010101
  3. LOSARTAN POTASSIUM [Concomitant]
     Indication: HYPERTENSION
     Dosage: 50 MG
     Route: 048
     Dates: start: 20060101
  4. BISOPROL [Concomitant]
     Indication: ATRIAL FIBRILLATION
     Dosage: 5 MG
     Route: 048
     Dates: start: 20080101
  5. OSCAL [Concomitant]
     Indication: OSTEOPOROSIS
     Dosage: 1000 MG
     Route: 048
     Dates: start: 20010101
  6. LEXAPRO [Concomitant]
     Indication: DEPRESSION
     Dosage: 5 MG
     Route: 048
     Dates: start: 20100101
  7. CETIRIZINE HCL [Concomitant]
     Indication: HYPERSENSITIVITY
     Dosage: 10 MG
     Route: 048
     Dates: start: 20100101
  8. FOLBEE [Concomitant]
     Indication: ROUTINE HEALTH MAINTENANCE
     Route: 048
     Dates: start: 20060101
  9. MAGNESIUM [Concomitant]
     Indication: ROUTINE HEALTH MAINTENANCE
     Route: 048
     Dates: start: 20060101
  10. DEPLIN [Concomitant]
     Indication: DEPRESSION
     Dosage: 7.5 MG
     Route: 048
     Dates: start: 20060101
  11. LOVASTATIN [Concomitant]
     Indication: BLOOD CHOLESTEROL INCREASED
     Dosage: 20 MG
     Route: 048
     Dates: start: 20060101
  12. ZINC SULFATE [Concomitant]
     Indication: ROUTINE HEALTH MAINTENANCE
     Dosage: 220 MG
     Route: 048
     Dates: start: 20100101
  13. PRADAXA [Suspect]
     Indication: ATRIAL FIBRILLATION
     Dosage: 300 MG
     Route: 048
     Dates: start: 20110713

REACTIONS (7)
  - FALL [None]
  - MUSCULAR WEAKNESS [None]
  - CONFUSIONAL STATE [None]
  - LETHARGY [None]
  - NEURODERMATITIS [None]
  - STAPHYLOCOCCAL INFECTION [None]
  - CONTUSION [None]
